FAERS Safety Report 5629866-4 (Version None)
Quarter: 2008Q1

REPORT INFORMATION
  Report Type: 
  Country: None (occurrence: None)
  Receive Date: 20080218
  Receipt Date: 20080213
  Transmission Date: 20080703
  Serious: Yes (Life-Threatening, Other)
  Sender: FDA-Public Use
  Company Number: SE-ASTRAZENECA-2008SE00838

PATIENT
  Age: 28037 Day
  Sex: Female

DRUGS (2)
  1. METOPROLOL TARTRATE [Suspect]
  2. AZD6140 CODE NOT BROKEN [Suspect]
     Indication: ACUTE CORONARY SYNDROME
     Route: 048

REACTIONS (1)
  - CARDIAC ARREST [None]
